FAERS Safety Report 6687093-6 (Version None)
Quarter: 2010Q2

REPORT INFORMATION
  Report Type: 
  Country: None (occurrence: None)
  Receive Date: 20100419
  Receipt Date: 20090921
  Transmission Date: 20101027
  Serious: Yes (Death, Hospitalization)
  Sender: FDA-Public Use
  Company Number: JP-SANOFI-AVENTIS-A01200814595

PATIENT
  Age: 68 Year
  Sex: Male

DRUGS (7)
  1. OXALIPLATIN [Suspect]
     Indication: RECTAL CANCER RECURRENT
     Route: 041
     Dates: start: 20071213, end: 20071227
  2. AVASTIN [Suspect]
     Indication: RECTAL CANCER RECURRENT
     Route: 041
     Dates: start: 20080724, end: 20080724
  3. FLUOROURACIL [Concomitant]
     Dates: start: 20071213, end: 20080724
  4. CALCIUM LEVOFOLINATE [Concomitant]
     Dates: start: 20071213, end: 20080724
  5. CAMPTOSAR [Concomitant]
     Dates: start: 20080124, end: 20080724
  6. SEROTONE [Concomitant]
     Dates: start: 20071213, end: 20080724
  7. DECADRON [Concomitant]
     Dates: start: 20071213, end: 20080724

REACTIONS (4)
  - CACHEXIA [None]
  - DEEP VEIN THROMBOSIS [None]
  - HYPERSENSITIVITY [None]
  - PULMONARY EMBOLISM [None]
